FAERS Safety Report 9669961 (Version 2)
Quarter: 2013Q4

REPORT INFORMATION
  Report Type: Spontaneous
  Country: US (occurrence: US)
  Receive Date: 20131105
  Receipt Date: 20131114
  Transmission Date: 20140711
  Serious: Yes (Other)
  Sender: FDA-Public Use
  Company Number: US-LUNDBECK-DKLU1094839

PATIENT
  Age: 13 Year
  Sex: Female

DRUGS (3)
  1. SABRIL (FOR ORAL SOLUTION) [Suspect]
     Indication: INFANTILE SPASMS
     Dates: start: 20091215
  2. SABRIL (FOR ORAL SOLUTION) [Suspect]
     Dates: start: 20121116
  3. SABRIL (FOR ORAL SOLUTION) [Suspect]
     Dates: start: 20121116

REACTIONS (1)
  - Blindness [Unknown]
